FAERS Safety Report 16146282 (Version 2)
Quarter: 2019Q2

REPORT INFORMATION
  Report Type: Spontaneous
  Country: US (occurrence: US)
  Receive Date: 20190402
  Receipt Date: 20190513
  Transmission Date: 20190711
  Serious: No
  Sender: FDA-Public Use
  Company Number: US-PFIZER INC-2019136177

PATIENT
  Age: 55 Year
  Sex: Male

DRUGS (3)
  1. LYRICA [Concomitant]
     Active Substance: PREGABALIN
     Dosage: 150 MG, UNK
  2. LISINOPRIL. [Concomitant]
     Active Substance: LISINOPRIL
     Dosage: 40 MG, UNK
  3. DILTIAZEM HCL [Suspect]
     Active Substance: DILTIAZEM HYDROCHLORIDE
     Indication: TACHYCARDIA
     Dosage: 30 MG, DAILY
     Route: 048
     Dates: start: 20170922, end: 20171026

REACTIONS (2)
  - Drug hypersensitivity [Unknown]
  - Dizziness postural [Unknown]

NARRATIVE: CASE EVENT DATE: 2017
